FAERS Safety Report 7075556-3 (Version None)
Quarter: 2010Q4

REPORT INFORMATION
  Report Type: 
  Country: None (occurrence: None)
  Receive Date: 20101030
  Receipt Date: 20100928
  Transmission Date: 20110411
  Serious: No
  Sender: FDA-Public Use
  Company Number: US-WYE-H17844110

PATIENT
  Age: 76 Year
  Sex: Female
  Weight: 63.56 kg

DRUGS (5)
  1. ALAVERT [Suspect]
     Route: 048
     Dates: start: 20100926, end: 20100926
  2. CALCIUM CARBONATE/VITAMIN D [Concomitant]
  3. ERGOCALCIFEROL [Concomitant]
  4. ATENOLOL [Concomitant]
  5. DYAZIDE [Concomitant]

REACTIONS (1)
  - HEADACHE [None]
